FAERS Safety Report 24132001 (Version 4)
Quarter: 2024Q4

REPORT INFORMATION
  Report Type: Spontaneous
  Country: CA (occurrence: CA)
  Receive Date: 20240724
  Receipt Date: 20241010
  Transmission Date: 20250114
  Serious: Yes (Hospitalization, Other)
  Sender: PFIZER
  Company Number: CA-PFIZER INC-202400222001

PATIENT
  Age: 44 Year
  Sex: Male

DRUGS (10)
  1. METHOTREXATE SODIUM [Suspect]
     Active Substance: METHOTREXATE SODIUM
     Dosage: 25 MG, WEEKLY
     Route: 048
  2. METHOTREXATE SODIUM [Suspect]
     Active Substance: METHOTREXATE SODIUM
     Dosage: 1 DF
     Route: 065
  3. ABRILADA [Concomitant]
     Active Substance: ADALIMUMAB-AFZB
     Indication: Crohn^s disease
     Dosage: 1 DF, WK0=160 MG, WK2=80 MG THEN 80 MG Q2 WK
     Route: 058
     Dates: start: 20240813
  4. FOLIC ACID [Concomitant]
     Active Substance: FOLIC ACID
     Dosage: 5 MG, WEEKLY
  5. HUMIRA [Concomitant]
     Active Substance: ADALIMUMAB
     Dosage: 80 MG, WEEKLY
  6. HUMIRA [Concomitant]
     Active Substance: ADALIMUMAB
     Dosage: SHIFTED TO RINVOQ IN EARLY 2024
     Dates: end: 2023
  7. PREDNISONE [Concomitant]
     Active Substance: PREDNISONE
     Dosage: UNK
     Dates: start: 202404, end: 202406
  8. REMICADE [Concomitant]
     Active Substance: INFLIXIMAB
     Dosage: STOPPED DUE TO ANTIBODY FORMATION
  9. RINVOQ [Concomitant]
     Active Substance: UPADACITINIB
     Dosage: STOPPED DUE TO POSSIBLE INTERACTION WITH METHOTREXATE
     Dates: start: 2024, end: 20240723
  10. STELARA [Concomitant]
     Active Substance: USTEKINUMAB
     Dosage: SEVERAL MONTHS IN 2022. STOPPED DUE TO INTOLERABILITY DUE TO MYALGIA
     Dates: start: 2022, end: 2022

REACTIONS (4)
  - Intestinal obstruction [Unknown]
  - Intestinal stenosis [Unknown]
  - Weight decreased [Unknown]
  - Back pain [Not Recovered/Not Resolved]

NARRATIVE: CASE EVENT DATE: 20240101
